FAERS Safety Report 11394816 (Version 1)
Quarter: 2015Q3

REPORT INFORMATION
  Report Type: Spontaneous
  Country: US (occurrence: US)
  Receive Date: 20150819
  Receipt Date: 20150819
  Transmission Date: 20151125
  Serious: Yes (Hospitalization, Other)
  Sender: FDA-Public Use
  Company Number: PHHY2015US096760

PATIENT
  Age: 63 Year
  Sex: Male

DRUGS (9)
  1. PREDNISOLONE. [Suspect]
     Active Substance: PREDNISOLONE
     Indication: SUPPLEMENTATION THERAPY
     Route: 065
  2. ARMOUR THYROID [Suspect]
     Active Substance: THYROID, PORCINE\THYROID, UNSPECIFIED
     Indication: SUPPLEMENTATION THERAPY
     Route: 065
  3. TESTOSTERONE. [Suspect]
     Active Substance: TESTOSTERONE
     Indication: SUPPLEMENTATION THERAPY
     Route: 065
  4. MULTI-VIT [Suspect]
     Active Substance: VITAMINS
     Indication: SUPPLEMENTATION THERAPY
     Route: 065
  5. N/W VITAMIN E [Concomitant]
     Indication: SUPPLEMENTATION THERAPY
     Route: 065
  6. MELATONIN [Suspect]
     Active Substance: MELATONIN
     Indication: SUPPLEMENTATION THERAPY
     Route: 065
  7. ZYMAX [Suspect]
     Active Substance: DIETARY SUPPLEMENT
     Indication: SUPPLEMENTATION THERAPY
     Route: 065
  8. DEHYDROEPIANDROSTERONE [Suspect]
     Active Substance: PRASTERONE
     Indication: SUPPLEMENTATION THERAPY
     Route: 065
  9. ASPIRIN. [Concomitant]
     Active Substance: ASPIRIN
     Indication: SUPPLEMENTATION THERAPY
     Route: 065

REACTIONS (8)
  - Loss of consciousness [Unknown]
  - Clonic convulsion [Unknown]
  - Thalamic infarction [None]
  - Infarction [Recovered/Resolved]
  - Cerebral venous thrombosis [Not Recovered/Not Resolved]
  - Scintillating scotoma [Unknown]
  - Headache [Unknown]
  - Fall [Unknown]
